FAERS Safety Report 4992872-7 (Version None)
Quarter: 2006Q2

REPORT INFORMATION
  Report Type: 
  Country: None (occurrence: None)
  Receive Date: 20060504
  Receipt Date: 20050915
  Transmission Date: 20061013
  Serious: Yes (Other)
  Sender: FDA-Public Use
  Company Number: CA-MERCK-0509CAN00094

PATIENT
  Age: 78 Year
  Sex: Female

DRUGS (5)
  1. VIOXX [Suspect]
     Indication: OSTEOARTHRITIS
     Route: 048
     Dates: start: 20021201, end: 20040901
  2. VIOXX [Suspect]
     Route: 048
     Dates: start: 20040901
  3. [THERAPY UNSPECIFIED] [Concomitant]
     Route: 065
  4. LEVOTHYROXINE SODIUM [Concomitant]
     Indication: THYROID DISORDER
     Route: 065
  5. CLOPIDOGREL BISULFATE [Concomitant]
     Indication: HYPERTENSION
     Route: 065

REACTIONS (4)
  - BLOOD PRESSURE ABNORMAL [None]
  - CEREBROVASCULAR ACCIDENT [None]
  - GASTRIC DISORDER [None]
  - TRANSIENT ISCHAEMIC ATTACK [None]
